FAERS Safety Report 13870546 (Version 2)
Quarter: 2017Q3

REPORT INFORMATION
  Report Type: Spontaneous
  Country: DE (occurrence: DE)
  Receive Date: 20170815
  Receipt Date: 20170831
  Transmission Date: 20171127
  Serious: Yes (Death, Other)
  Sender: FDA-Public Use
  Company Number: DE-MYLANLABS-2017M1050041

PATIENT
  Sex: Female

DRUGS (1)
  1. UNAT 10 MG (TORASEMIDE) [Suspect]
     Active Substance: TORSEMIDE
     Indication: PRODUCT USED FOR UNKNOWN INDICATION
     Dosage: 10 MG, QD

REACTIONS (5)
  - Asthenia [Unknown]
  - Overdose [Unknown]
  - Fall [Unknown]
  - Medication error [Unknown]
  - Death [Fatal]
